FAERS Safety Report 15254148 (Version 2)
Quarter: 2018Q3

REPORT INFORMATION
  Report Type: Spontaneous
  Country: DE (occurrence: DE)
  Receive Date: 20180808
  Receipt Date: 20180914
  Transmission Date: 20181010
  Serious: Yes (Other)
  Sender: FDA-Public Use
  Company Number: DE-AUROBINDO-AUR-APL-2018-039084

PATIENT
  Sex: Female

DRUGS (1)
  1. AMOXI?CLAVULAN AUROBINDO FILMTABLETTEN 875/125MG [Suspect]
     Active Substance: AMOXICILLIN\CLAVULANIC ACID
     Indication: BACTERIAL INFECTION
     Dosage: 1 DOSAGE FORM
     Route: 048
     Dates: start: 20180725, end: 20180725

REACTIONS (1)
  - Anaphylactic shock [Recovered/Resolved]

NARRATIVE: CASE EVENT DATE: 20180725
